FAERS Safety Report 20937281 (Version 1)
Quarter: 2022Q2

REPORT INFORMATION
  Report Type: Spontaneous
  Country: TR (occurrence: TR)
  Receive Date: 20220609
  Receipt Date: 20220609
  Transmission Date: 20220721
  Serious: Yes (Other)
  Sender: FDA-Public Use
  Company Number: TR-ORGANON-O2206TUR000335

PATIENT
  Age: 17 Year
  Sex: Male

DRUGS (1)
  1. GONADOTROPIN, CHORIONIC [Suspect]
     Active Substance: CHORIOGONADOTROPIN ALFA
     Indication: Adverse drug reaction
     Dosage: 5000 IU WEEKLY (FOR THREE WEEKS)

REACTIONS (1)
  - Major depression [Unknown]
